FAERS Safety Report 25452554 (Version 1)
Quarter: 2025Q2

REPORT INFORMATION
  Report Type: Spontaneous
  Country: CN (occurrence: CN)
  Receive Date: 20250618
  Receipt Date: 20250618
  Transmission Date: 20250716
  Serious: Yes (Other)
  Sender: PFIZER
  Company Number: CN-PFIZER INC-PV202500071419

PATIENT
  Age: 1 Year
  Sex: Male
  Weight: 8.5 kg

DRUGS (1)
  1. IRINOTECAN [Suspect]
     Active Substance: IRINOTECAN
     Indication: Neuroblastoma
     Dosage: 22 MG, 1X/DAY
     Route: 041
     Dates: start: 20250603, end: 20250607

REACTIONS (4)
  - Infantile diarrhoea [Recovering/Resolving]
  - Mucous stools [Recovering/Resolving]
  - Off label use [Unknown]
  - Off label use [Unknown]

NARRATIVE: CASE EVENT DATE: 20250603
